FAERS Safety Report 13072837 (Version 3)
Quarter: 2017Q4

REPORT INFORMATION
  Report Type: Spontaneous
  Country: US (occurrence: US)
  Receive Date: 20161229
  Receipt Date: 20171016
  Transmission Date: 20180320
  Serious: Yes (Other)
  Sender: FDA-Public Use
  Company Number: US-SA-2016SA128724

PATIENT
  Age: 57 Year
  Sex: Female
  Weight: 59.9 kg

DRUGS (9)
  1. HYDROCODONE [Concomitant]
     Active Substance: HYDROCODONE
  2. HERCEPTIN [Concomitant]
     Active Substance: TRASTUZUMAB
  3. TAXOTERE [Suspect]
     Active Substance: DOCETAXEL
     Indication: BREAST CANCER FEMALE
     Dosage: DOSE 80 MG/ 4ML MDV (1MG)
     Route: 051
     Dates: start: 20150116, end: 20150116
  4. TAXOTERE [Suspect]
     Active Substance: DOCETAXEL
     Indication: BREAST CANCER FEMALE
     Dosage: DOSE 80 MG/ 4ML MDV (1MG)
     Route: 051
     Dates: start: 20140926, end: 20140926
  5. DEXAMETHASONE. [Concomitant]
     Active Substance: DEXAMETHASONE
  6. ACETAMINOPHEN. [Concomitant]
     Active Substance: ACETAMINOPHEN
  7. PARAPLATIN [Concomitant]
     Active Substance: CARBOPLATIN
  8. NEULASTA [Concomitant]
     Active Substance: PEGFILGRASTIM
  9. PERJETA [Concomitant]
     Active Substance: PERTUZUMAB

REACTIONS (2)
  - Alopecia [Not Recovered/Not Resolved]
  - Psychological trauma [Unknown]

NARRATIVE: CASE EVENT DATE: 201507
